FAERS Safety Report 17224328 (Version 2)
Quarter: 2020Q1

REPORT INFORMATION
  Report Type: Report from Study
  Country: ES (occurrence: ES)
  Receive Date: 20200102
  Receipt Date: 20200322
  Transmission Date: 20200409
  Serious: Yes (Other)
  Sender: FDA-Public Use
  Company Number: NVSC2019ES084364

PATIENT
  Age: 78 Year
  Sex: Female

DRUGS (2)
  1. SIGNIFOR LAR [Suspect]
     Active Substance: PASIREOTIDE PAMOATE
     Indication: ACROMEGALY
     Dosage: 4 MG (MONTHLY).
     Route: 058
     Dates: start: 20180625, end: 20190119
  2. SOMATOSTATIN [Concomitant]
     Active Substance: SOMATOSTATIN
     Indication: ACROMEGALY
     Dosage: UNK
     Route: 065

REACTIONS (7)
  - Varicose vein [Unknown]
  - Typhoid fever [Unknown]
  - Psoriasis [Unknown]
  - Necrolytic migratory erythema [Unknown]
  - Pemphigoid [Unknown]
  - Toxic skin eruption [Recovering/Resolving]
  - Eczema [Not Recovered/Not Resolved]

NARRATIVE: CASE EVENT DATE: 20180718
